FAERS Safety Report 5443054-6 (Version None)
Quarter: 2007Q3

REPORT INFORMATION
  Report Type: 
  Country: None (occurrence: None)
  Receive Date: 20070905
  Receipt Date: 20070830
  Transmission Date: 20080115
  Serious: Yes (Other)
  Sender: FDA-Public Use
  Company Number: PHEH2007US10855

PATIENT
  Sex: Female

DRUGS (1)
  1. ZELNORM [Suspect]
     Route: 048

REACTIONS (5)
  - DIARRHOEA [None]
  - INTESTINAL OBSTRUCTION [None]
  - SURGERY [None]
  - VOLVULUS [None]
  - VOMITING [None]
